FAERS Safety Report 9613324 (Version 3)
Quarter: 2013Q4

REPORT INFORMATION
  Report Type: Spontaneous
  Country: US (occurrence: US)
  Receive Date: 20131010
  Receipt Date: 20131120
  Transmission Date: 20140711
  Serious: No
  Sender: FDA-Public Use
  Company Number: US-TEVA-437613USA

PATIENT
  Age: 28 Year
  Sex: Female
  Weight: 54.48 kg

DRUGS (1)
  1. PLAN B ONE-STEP [Suspect]
     Indication: POST COITAL CONTRACEPTION
     Dosage: 1.5 MILLIGRAM DAILY;
     Route: 048
     Dates: start: 20131009, end: 20131009

REACTIONS (2)
  - Headache [Recovered/Resolved]
  - Menstruation delayed [Not Recovered/Not Resolved]
